FAERS Safety Report 4960737-2 (Version None)
Quarter: 2006Q2

REPORT INFORMATION
  Report Type: 
  Country: None (occurrence: None)
  Receive Date: 20060403
  Receipt Date: 20060322
  Transmission Date: 20061013
  Serious: Yes (Other)
  Sender: FDA-Public Use
  Company Number: JP-MERCK-0603USA04231

PATIENT
  Age: 61 Year
  Sex: Female

DRUGS (2)
  1. PEPCID RPD [Suspect]
     Indication: DRUG USE FOR UNKNOWN INDICATION
     Route: 048
     Dates: start: 20030301, end: 20030401
  2. [THERAPY UNSPECIFIED] [Suspect]
     Route: 065

REACTIONS (2)
  - LEUKOPENIA [None]
  - SEPSIS [None]
